FAERS Safety Report 9778937 (Version 1)
Quarter: 2013Q4

REPORT INFORMATION
  Report Type: Spontaneous
  Country: MX (occurrence: MX)
  Receive Date: 20131223
  Receipt Date: 20131223
  Transmission Date: 20140711
  Serious: Yes (Hospitalization)
  Sender: FDA-Public Use
  Company Number: MX-AMGEN-MEXSP2013089715

PATIENT
  Age: 68 Year
  Sex: Male

DRUGS (10)
  1. NEUPOGEN [Suspect]
     Indication: PRODUCT USED FOR UNKNOWN INDICATION
     Dosage: 300 MG, CYCLE 2, 5 DOSES ADMINISTERED DAY 8-12
     Route: 065
  2. NEUPOGEN [Suspect]
     Dosage: 300 MG, CYCLE 3, 6 DOSES ADMINISTERED DAY 7-12
     Route: 065
  3. RITUXIMAB [Suspect]
     Indication: PRODUCT USED FOR UNKNOWN INDICATION
     Dosage: 375 UNK, CYCLE 1 EVERY 3 WEEKS
     Route: 065
  4. RITUXIMAB [Suspect]
     Dosage: 375 UNK, CYCLE 1 EVERY 3 WEEKS
     Route: 065
  5. CYCLOPHOSPHAMIDE [Suspect]
     Indication: PRODUCT USED FOR UNKNOWN INDICATION
     Dosage: 780 UNK, CYCLE 1 EVERY 3 WEEKS 780M2
     Route: 065
  6. CYCLOPHOSPHAMIDE [Suspect]
     Dosage: 780 UNK, CYCLE 1 EVERY 3 WEEKS 780M2
     Route: 065
  7. VINCRISTINE [Suspect]
     Indication: PRODUCT USED FOR UNKNOWN INDICATION
     Dosage: (2 MG, 1 IN 3 WK) CYCLE 1 EVERY 3 WEEKS
     Route: 065
  8. VINCRISTINE [Suspect]
     Dosage: (2 MG, 1 IN 3 WK), CYCLE 3 EVERY 3 WEEKS
     Route: 065
  9. PREDNISONE [Suspect]
     Indication: PRODUCT USED FOR UNKNOWN INDICATION
     Dosage: (100 MG, 1 IN 3 WK) , CYCLE 1.5 EVERY 3 WEEKS
     Route: 065
  10. PREDNISONE [Suspect]
     Dosage: (100 MG, 1 IN 3 WK), CYCLE 1.5 EVERY 3 WEEKS
     Route: 065

REACTIONS (2)
  - Neutropenia [Unknown]
  - Febrile neutropenia [Unknown]
